FAERS Safety Report 25127845 (Version 2)
Quarter: 2025Q2

REPORT INFORMATION
  Report Type: Spontaneous
  Country: SG (occurrence: SG)
  Receive Date: 20250327
  Receipt Date: 20250418
  Transmission Date: 20250716
  Serious: Yes (Other)
  Sender: ROCHE
  Company Number: SG-ROCHE-10000234019

PATIENT
  Age: 48 Year
  Sex: Female
  Weight: 55 kg

DRUGS (4)
  1. PERJETA [Suspect]
     Active Substance: PERTUZUMAB
     Indication: Breast cancer
     Route: 065
     Dates: start: 20231130, end: 202502
  2. TRASTUZUMAB [Suspect]
     Active Substance: TRASTUZUMAB
     Indication: Breast cancer
     Route: 065
     Dates: start: 20231130, end: 202502
  3. CARBOPLATIN [Suspect]
     Active Substance: CARBOPLATIN
     Indication: Breast cancer
     Route: 065
     Dates: start: 20231130, end: 202502
  4. DOCETAXEL [Suspect]
     Active Substance: DOCETAXEL
     Indication: Breast cancer
     Route: 065
     Dates: start: 20231130, end: 202502

REACTIONS (9)
  - Mastectomy [Unknown]
  - Rash [Unknown]
  - Acne [Unknown]
  - Myalgia [Unknown]
  - Muscle spasms [Unknown]
  - Onychoclasis [Unknown]
  - Nail ridging [Unknown]
  - Hypoaesthesia [Unknown]
  - Nail disorder [Unknown]
